FAERS Safety Report 12782871 (Version 3)
Quarter: 2016Q4

REPORT INFORMATION
  Report Type: Spontaneous
  Country: FR (occurrence: FR)
  Receive Date: 20160927
  Receipt Date: 20161031
  Transmission Date: 20170207
  Serious: Yes (Other)
  Sender: FDA-Public Use
  Company Number: FR-LEO PHARMA-244142

PATIENT
  Age: 82 Year
  Sex: Female

DRUGS (1)
  1. PICATO [Suspect]
     Active Substance: INGENOL MEBUTATE
     Indication: ACTINIC KERATOSIS
     Route: 061
     Dates: start: 20160515, end: 20160516

REACTIONS (2)
  - Squamous cell carcinoma of skin [Recovered/Resolved with Sequelae]
  - Application site scab [Recovered/Resolved with Sequelae]

NARRATIVE: CASE EVENT DATE: 2016
